FAERS Safety Report 9621638 (Version 1)
Quarter: 2013Q4

REPORT INFORMATION
  Report Type: Spontaneous
  Country: US (occurrence: US)
  Receive Date: 20131015
  Receipt Date: 20131015
  Transmission Date: 20140711
  Serious: Yes (Hospitalization)
  Sender: FDA-Public Use
  Company Number: US-BAYER-2013-124213

PATIENT
  Age: 24 Year
  Sex: Female
  Weight: 70.3 kg

DRUGS (3)
  1. YAZ [Suspect]
  2. NEXIUM [Concomitant]
  3. SLOW FE [Concomitant]

REACTIONS (1)
  - Pulmonary embolism [None]
